FAERS Safety Report 22540259 (Version 1)
Quarter: 2023Q2

REPORT INFORMATION
  Report Type: Spontaneous
  Country: US (occurrence: US)
  Receive Date: 20230609
  Receipt Date: 20230609
  Transmission Date: 20230721
  Serious: Yes (Other)
  Sender: FDA-Public Use
  Company Number: US-MLMSERVICE-20230530-4312839-1

PATIENT
  Age: 5 Month
  Sex: Female

DRUGS (12)
  1. DOXORUBICIN HYDROCHLORIDE [Suspect]
     Active Substance: DOXORUBICIN HYDROCHLORIDE
     Indication: Primitive neuroectodermal tumour
     Dosage: 30 MG/M2, CYCLIC, ON DAYS 2 AND 3 OF WEEKS 1, 4, AND 13
  2. TOPOTECAN HYDROCHLORIDE [Suspect]
     Active Substance: TOPOTECAN HYDROCHLORIDE
     Indication: Primitive neuroectodermal tumour
     Dosage: 0.2 MG/M2, CYCLIC, DAY 1 OF WEEKS 1, 2, 4, 7 AND 13
     Route: 037
  3. VINCRISTINE SULFATE [Suspect]
     Active Substance: VINCRISTINE SULFATE
     Indication: Primitive neuroectodermal tumour
     Dosage: 2 MG/M2, CYCLIC, DAY 1 OF WEEKS 1-13 AND WEEK 16 OF THERAPY
     Route: 042
  4. DACTINOMYCIN [Suspect]
     Active Substance: DACTINOMYCIN
     Indication: Primitive neuroectodermal tumour
     Dosage: 1.2 MG/M2, CYCLIC, ON DAYS 1, 2, 3, 4, AND 5 OF WEEK16
     Route: 042
  5. CYCLOPHOSPHAMIDE [Suspect]
     Active Substance: CYCLOPHOSPHAMIDE
     Indication: Primitive neuroectodermal tumour
     Dosage: 300 MG/M2, CYCLIC, ON DAYS 2, 3, AND 4 OF WEEKS 1, 13, AND 16
  6. CYCLOPHOSPHAMIDE [Suspect]
     Active Substance: CYCLOPHOSPHAMIDE
     Dosage: 600 MG/M2, CYCLIC, ON DAY 2 OF WEEKS 7 AND 10
     Route: 042
  7. CISPLATIN [Suspect]
     Active Substance: CISPLATIN
     Indication: Primitive neuroectodermal tumour
     Dosage: 90 MG/M2, CYCLIC, ON DAY 1 OF WEEKS 1, 4, 7, AND 10
     Route: 042
  8. ETOPOSIDE [Suspect]
     Active Substance: ETOPOSIDE
     Indication: Primitive neuroectodermal tumour
     Dosage: 100 MG/M2 ON DAYS 1, 2, AND 3 OF WEEKS 4, 7, AND 10
     Route: 042
  9. CARBOPLATIN [Concomitant]
     Active Substance: CARBOPLATIN
     Indication: Primitive neuroectodermal tumour
     Dosage: UNK
  10. THIOTEPA [Concomitant]
     Active Substance: THIOTEPA
     Indication: Primitive neuroectodermal tumour
     Dosage: UNK
  11. DIFLUROMETHYLORNITHINE [Concomitant]
     Indication: Primitive neuroectodermal tumour
     Dosage: UNK
  12. EVEROLIMUS [Concomitant]
     Active Substance: EVEROLIMUS
     Indication: Primitive neuroectodermal tumour
     Dosage: UNK

REACTIONS (2)
  - Venoocclusive liver disease [Unknown]
  - Off label use [Unknown]
